FAERS Safety Report 19394552 (Version 1)
Quarter: 2021Q2

REPORT INFORMATION
  Report Type: Report from Study
  Country: KR (occurrence: KR)
  Receive Date: 20210609
  Receipt Date: 20210609
  Transmission Date: 20210717
  Serious: Yes (Hospitalization)
  Sender: FDA-Public Use
  Company Number: KR-SAMSUNG BIOEPIS-SB-2021-13398

PATIENT
  Age: 37 Year
  Sex: Female
  Weight: 67.9 kg

DRUGS (12)
  1. SAMFENET [Suspect]
     Active Substance: TRASTUZUMAB
     Indication: BREAST CANCER METASTATIC
     Route: 065
     Dates: start: 20201014, end: 20201014
  2. PERJETA [Suspect]
     Active Substance: PERTUZUMAB
     Indication: PRODUCT USED FOR UNKNOWN INDICATION
     Route: 042
     Dates: start: 20201014, end: 20201014
  3. SAMFENET [Suspect]
     Active Substance: TRASTUZUMAB
     Route: 065
     Dates: start: 20201103, end: 20201103
  4. SAMFENET [Suspect]
     Active Substance: TRASTUZUMAB
     Route: 065
     Dates: start: 20201215, end: 20201215
  5. SAMFENET [Suspect]
     Active Substance: TRASTUZUMAB
     Route: 065
     Dates: start: 20210309, end: 20210309
  6. SAMFENET [Suspect]
     Active Substance: TRASTUZUMAB
     Route: 065
     Dates: start: 20201125, end: 20201125
  7. DOCETAXEL. [Suspect]
     Active Substance: DOCETAXEL
     Indication: PRODUCT USED FOR UNKNOWN INDICATION
     Route: 042
     Dates: start: 20201015, end: 20210126
  8. DOCETAXEL. [Suspect]
     Active Substance: DOCETAXEL
     Route: 042
     Dates: start: 20210216
  9. PERJETA [Suspect]
     Active Substance: PERTUZUMAB
     Route: 042
     Dates: start: 20201103
  10. SAMFENET [Suspect]
     Active Substance: TRASTUZUMAB
     Route: 065
     Dates: start: 20210105, end: 20210105
  11. SAMFENET [Suspect]
     Active Substance: TRASTUZUMAB
     Route: 065
     Dates: start: 20210126, end: 20210126
  12. SAMFENET [Suspect]
     Active Substance: TRASTUZUMAB
     Route: 065
     Dates: start: 20210216, end: 20210216

REACTIONS (1)
  - Anal abscess [Recovered/Resolved]

NARRATIVE: CASE EVENT DATE: 20201106
